FAERS Safety Report 12136589 (Version 1)
Quarter: 2016Q1

REPORT INFORMATION
  Report Type: Spontaneous
  Country: US (occurrence: None)
  Receive Date: 20160301
  Receipt Date: 20160301
  Transmission Date: 20160526
  Serious: No
  Sender: FDA-Public Use
  Company Number: None

PATIENT
  Age: 78 Year
  Sex: Female
  Weight: 89.81 kg

DRUGS (6)
  1. ANASTRAZOLE [Suspect]
     Active Substance: ANASTROZOLE
     Indication: BREAST CANCER
     Route: 048
     Dates: start: 20140701
  2. CALCIUM [Concomitant]
     Active Substance: CALCIUM
  3. VITAMIN D [Concomitant]
     Active Substance: CHOLECALCIFEROL
  4. LISINOPRIL. [Concomitant]
     Active Substance: LISINOPRIL
  5. LIPITOR [Concomitant]
     Active Substance: ATORVASTATIN CALCIUM
  6. PAROXETINE [Concomitant]
     Active Substance: PAROXETINE\PAROXETINE HYDROCHLORIDE

REACTIONS (5)
  - Blood pressure increased [None]
  - Pain in extremity [None]
  - Bone pain [None]
  - Onychoclasis [None]
  - Blood calcium decreased [None]

NARRATIVE: CASE EVENT DATE: 20140726
